FAERS Safety Report 6911446-1 (Version None)
Quarter: 2010Q3

REPORT INFORMATION
  Report Type: 
  Country: None (occurrence: None)
  Receive Date: 20100806
  Receipt Date: 20100727
  Transmission Date: 20110219
  Serious: Yes (Other)
  Sender: FDA-Public Use
  Company Number: US-ABBOTT-10P-163-0659728-00

PATIENT
  Age: 8 Year
  Sex: Male
  Weight: 34.4 kg

DRUGS (4)
  1. HUMIRA [Suspect]
     Indication: JUVENILE ARTHRITIS
     Route: 058
     Dates: start: 20100201
  2. INDOMETHACIN SODIUM [Suspect]
     Indication: JUVENILE ARTHRITIS
     Route: 048
     Dates: start: 20081101
  3. METHOTREXATE [Suspect]
     Indication: JUVENILE ARTHRITIS
     Route: 058
     Dates: start: 20090901
  4. ZANTAC [Suspect]
     Indication: PRODUCT USED FOR UNKNOWN INDICATION
     Route: 048
     Dates: start: 20081101

REACTIONS (4)
  - BLEPHAROSPASM [None]
  - HEADACHE [None]
  - NERVOUS SYSTEM DISORDER [None]
  - VOMITING [None]
